FAERS Safety Report 25474482 (Version 1)
Quarter: 2025Q2

REPORT INFORMATION
  Report Type: Report from Study
  Country: JP (occurrence: JP)
  Receive Date: 20250624
  Receipt Date: 20250624
  Transmission Date: 20250716
  Serious: Yes (Death, Hospitalization)
  Sender: SHIONOGI
  Company Number: JP-shionogi-202500006325

PATIENT
  Age: 47 Year
  Sex: Male
  Weight: 70.9 kg

DRUGS (14)
  1. CEFIDEROCOL [Suspect]
     Active Substance: CEFIDEROCOL
     Indication: Stenotrophomonas bacteraemia
     Route: 041
     Dates: start: 20240627, end: 20240703
  2. CEFIDEROCOL [Suspect]
     Active Substance: CEFIDEROCOL
     Route: 041
     Dates: start: 20240704, end: 20240724
  3. CYCLOSPORINE [Suspect]
     Active Substance: CYCLOSPORINE
     Indication: Product used for unknown indication
     Route: 065
     Dates: end: 20240724
  4. CEFTAZIDIME [Concomitant]
     Active Substance: CEFTAZIDIME
     Indication: Stenotrophomonas bacteraemia
     Route: 065
     Dates: start: 20240624, end: 20240627
  5. METRONIDAZOLE [Concomitant]
     Active Substance: METRONIDAZOLE
     Indication: Stenotrophomonas bacteraemia
     Route: 065
     Dates: start: 20240624, end: 20240724
  6. MINOCYCLINE HYDROCHLORIDE [Concomitant]
     Active Substance: MINOCYCLINE HYDROCHLORIDE
     Indication: Stenotrophomonas bacteraemia
     Route: 065
     Dates: start: 20240621, end: 20240711
  7. CELLCEPT [Concomitant]
     Active Substance: MYCOPHENOLATE MOFETIL
     Indication: Product used for unknown indication
     Route: 048
     Dates: end: 20240724
  8. FILGRASTIM [Concomitant]
     Active Substance: FILGRASTIM
     Indication: Product used for unknown indication
     Route: 065
     Dates: end: 20240723
  9. ACYCLOVIR [Concomitant]
     Active Substance: ACYCLOVIR
     Indication: Product used for unknown indication
     Route: 065
     Dates: end: 20240723
  10. AMBISOME [Concomitant]
     Active Substance: AMPHOTERICIN B
     Indication: Product used for unknown indication
     Route: 065
     Dates: end: 20240716
  11. VANCOMYCIN [Concomitant]
     Active Substance: VANCOMYCIN
     Indication: Product used for unknown indication
     Route: 065
     Dates: end: 20240724
  12. OMEPRAZOLE [Concomitant]
     Active Substance: OMEPRAZOLE
     Indication: Prophylaxis
     Route: 065
     Dates: end: 20240724
  13. LEVOFLOXACIN HEMIHYDRATE [Concomitant]
     Active Substance: LEVOFLOXACIN
     Indication: Stenotrophomonas bacteraemia
     Route: 065
     Dates: end: 20240627
  14. MICAFUNGIN SODIUM [Concomitant]
     Active Substance: MICAFUNGIN SODIUM
     Indication: Product used for unknown indication
     Route: 065
     Dates: start: 20240712, end: 20240723

REACTIONS (4)
  - Sepsis [Fatal]
  - Bronchopulmonary aspergillosis [Fatal]
  - Systemic candida [Fatal]
  - Hepatic function abnormal [Not Recovered/Not Resolved]

NARRATIVE: CASE EVENT DATE: 20240701
